FAERS Safety Report 9380638 (Version 1)
Quarter: 2013Q2

REPORT INFORMATION
  Report Type: Spontaneous
  Country: US (occurrence: None)
  Receive Date: 20130628
  Receipt Date: 20130628
  Transmission Date: 20140414
  Serious: Yes (Other)
  Sender: FDA-Public Use
  Company Number: AXC-2013-000279

PATIENT
  Sex: 0

DRUGS (1)
  1. CARAFATE [Suspect]
     Indication: MOUTH ULCERATION

REACTIONS (2)
  - Convulsion [None]
  - Drug ineffective for unapproved indication [None]
